FAERS Safety Report 7774714-X (Version None)
Quarter: 2011Q3

REPORT INFORMATION
  Report Type: 
  Country: None (occurrence: None)
  Receive Date: 20110923
  Receipt Date: 20110920
  Transmission Date: 20111222
  Serious: Yes (Death, Hospitalization)
  Sender: FDA-Public Use
  Company Number: ZA-ROCHE-803553

PATIENT
  Age: 77 Year
  Sex: Female

DRUGS (1)
  1. XELODA [Suspect]
     Route: 065

REACTIONS (3)
  - DIARRHOEA [None]
  - SEPSIS [None]
  - PULMONARY FIBROSIS [None]
